FAERS Safety Report 4957783-1 (Version None)
Quarter: 2006Q1

REPORT INFORMATION
  Report Type: 
  Country: None (occurrence: None)
  Receive Date: 20060324
  Receipt Date: 20060313
  Transmission Date: 20060701
  Serious: Yes (Hospitalization)
  Sender: FDA-Public Use
  Company Number: GB200603003223

PATIENT
  Age: 58 Year
  Sex: Female

DRUGS (6)
  1. FLUOXETINE HCL [Suspect]
     Indication: DEPRESSION
     Dosage: 20 MG DAILY (1/D) ORAL
     Route: 048
     Dates: start: 20060127, end: 20060202
  2. RISPERIDONE [Concomitant]
  3. CHLORPROMAZINE [Concomitant]
  4. OMEPRAZOLE [Concomitant]
  5. GLICLAZIDE [Concomitant]
  6. METFORMIN [Concomitant]

REACTIONS (3)
  - FALL [None]
  - HYPOTENSION [None]
  - SPINAL SHOCK [None]
